FAERS Safety Report 13270126 (Version 1)
Quarter: 2017Q1

REPORT INFORMATION
  Report Type: Spontaneous
  Country: IT (occurrence: IT)
  Receive Date: 20170224
  Receipt Date: 20170224
  Transmission Date: 20170428
  Serious: Yes (Hospitalization)
  Sender: FDA-Public Use
  Company Number: IT-SA-2017SA029963

PATIENT
  Age: 83 Year
  Sex: Male

DRUGS (5)
  1. CONGESCOR [Concomitant]
     Active Substance: BISOPROLOL
  2. TRIATEC [Concomitant]
     Active Substance: RAMIPRIL
  3. ZYLORIC [Concomitant]
     Active Substance: ALLOPURINOL
  4. SOLOSA [Suspect]
     Active Substance: GLIMEPIRIDE
     Indication: DIABETES MELLITUS
     Route: 048
     Dates: start: 20160101, end: 20161203
  5. COUMADIN [Concomitant]
     Active Substance: WARFARIN SODIUM

REACTIONS (3)
  - Asthenia [Unknown]
  - Cold sweat [Unknown]
  - Loss of consciousness [Unknown]

NARRATIVE: CASE EVENT DATE: 20161203
